FAERS Safety Report 8600562-4 (Version None)
Quarter: 2012Q3

REPORT INFORMATION
  Report Type: 
  Country: None (occurrence: None)
  Receive Date: 20120803
  Receipt Date: 20120726
  Transmission Date: 20120928
  Serious: Yes (Hospitalization)
  Sender: FDA-Public Use
  Company Number: 2012SP034442

PATIENT
  Age: 56 Year
  Sex: Female

DRUGS (4)
  1. CEDAX [Suspect]
     Indication: OEDEMA
     Dosage: 400 MG, QD, ORAL
     Route: 048
     Dates: start: 20120323, end: 20120328
  2. CEDAX [Suspect]
     Indication: ERYTHEMA
     Dosage: 400 MG, QD, ORAL
     Route: 048
     Dates: start: 20120323, end: 20120328
  3. IRUXOL (CHLORAMPHENICO (+) COLLAGENASE) (CHLORAMPHENICOL, COLLAGENASE) [Concomitant]
  4. ENOXAPARIN SODIUM [Suspect]
     Indication: ERYTHEMA
     Dosage: 4000 IU, QD SUBCUTANEOUS
     Route: 058
     Dates: start: 20120323, end: 20120328

REACTIONS (1)
  - PEMPHIGUS [None]
